FAERS Safety Report 8280317-3 (Version None)
Quarter: 2012Q2

REPORT INFORMATION
  Report Type: 
  Country: None (occurrence: None)
  Receive Date: 20120412
  Receipt Date: 20120206
  Transmission Date: 20120825
  Serious: No
  Sender: FDA-Public Use
  Company Number: US-ASTRAZENECA-2012SE07096

PATIENT
  Age: 80 Year
  Sex: Male
  Weight: 88 kg

DRUGS (5)
  1. ASPIRIN [Concomitant]
     Dates: start: 20090101
  2. NEXIUM [Suspect]
     Route: 048
  3. VALIUM [Concomitant]
     Indication: ANXIETY
  4. SIMVASTATIN [Concomitant]
     Indication: LOW DENSITY LIPOPROTEIN INCREASED
  5. NEXIUM [Suspect]
     Indication: BARRETT'S OESOPHAGUS
     Route: 048

REACTIONS (2)
  - GASTRIC DISORDER [None]
  - OFF LABEL USE [None]
